FAERS Safety Report 6858898-3 (Version None)
Quarter: 2010Q3

REPORT INFORMATION
  Report Type: 
  Country: None (occurrence: None)
  Receive Date: 20100719
  Receipt Date: 20080214
  Transmission Date: 20110219
  Serious: No
  Sender: FDA-Public Use
  Company Number: US-PFIZER INC-2008016694

PATIENT
  Sex: Female
  Weight: 110 kg

DRUGS (6)
  1. CHANTIX [Suspect]
     Indication: SMOKING CESSATION THERAPY
     Dates: start: 20080101
  2. LIPITOR [Concomitant]
  3. MONTELUKAST SODIUM [Concomitant]
  4. INSULIN [Concomitant]
  5. LISINOPRIL [Concomitant]
  6. SYNTHROID [Concomitant]

REACTIONS (1)
  - OROPHARYNGEAL PAIN [None]
